FAERS Safety Report 5277805-0 (Version None)
Quarter: 2007Q1

REPORT INFORMATION
  Report Type: 
  Country: None (occurrence: None)
  Receive Date: 20070321
  Receipt Date: 20070314
  Transmission Date: 20070707
  Serious: Yes (Other)
  Sender: FDA-Public Use
  Company Number: 236996

PATIENT
  Sex: Female

DRUGS (5)
  1. XOLAIR [Suspect]
     Indication: ASTHMA
     Dosage: 375 MG, Q2W, SUBCUTANEOUS
     Route: 058
     Dates: start: 20041129
  2. ALBUTEROL (ALBUTEROL/ALBUTEROL SULFATE) [Concomitant]
  3. ACCUNEB (ALBUTEROL/ALBUTEROL SULFATE) [Concomitant]
  4. PREDNISONE TAB [Concomitant]
  5. PULMICORT [Concomitant]

REACTIONS (5)
  - CAESAREAN SECTION [None]
  - DRUG EXPOSURE DURING PREGNANCY [None]
  - DYSPNOEA [None]
  - PREGNANCY [None]
  - PREMATURE LABOUR [None]
